FAERS Safety Report 22692184 (Version 3)
Quarter: 2024Q2

REPORT INFORMATION
  Report Type: Spontaneous
  Country: DE (occurrence: DE)
  Receive Date: 20230711
  Receipt Date: 20240429
  Transmission Date: 20240716
  Serious: Yes (Other)
  Sender: FDA-Public Use
  Company Number: None

PATIENT
  Sex: Female
  Weight: 90 kg

DRUGS (17)
  1. ADALIMUMAB [Suspect]
     Active Substance: ADALIMUMAB\ISOPROPYL ALCOHOL
     Indication: Spondylitis
     Dosage: STOP DATE 2013
     Route: 058
     Dates: start: 201301
  2. ADALIMUMAB [Suspect]
     Active Substance: ADALIMUMAB\ISOPROPYL ALCOHOL
     Route: 058
     Dates: start: 201307
  3. TOCILIZUMAB [Suspect]
     Active Substance: TOCILIZUMAB
     Indication: Product used for unknown indication
     Route: 042
     Dates: start: 201404
  4. PREDNISOLONE [Suspect]
     Active Substance: PREDNISOLONE
     Indication: Product used for unknown indication
     Route: 065
     Dates: start: 201307
  5. PREDNISOLONE [Suspect]
     Active Substance: PREDNISOLONE
     Indication: Product used for unknown indication
     Route: 065
     Dates: start: 201506
  6. PREDNISOLONE [Suspect]
     Active Substance: PREDNISOLONE
     Indication: Product used for unknown indication
     Route: 065
     Dates: start: 201502
  7. PREDNISOLONE [Suspect]
     Active Substance: PREDNISOLONE
     Indication: Product used for unknown indication
     Route: 065
  8. CERTOLIZUMAB [Suspect]
     Active Substance: CERTOLIZUMAB
     Indication: Product used for unknown indication
     Route: 058
     Dates: start: 20160215, end: 201708
  9. RITUXIMAB [Suspect]
     Active Substance: RITUXIMAB
     Indication: Product used for unknown indication
     Dosage: 1 GRAM, 2X
     Route: 065
     Dates: start: 201312
  10. ABATACEPT [Suspect]
     Active Substance: ABATACEPT
     Indication: Product used for unknown indication
     Route: 042
     Dates: start: 201401
  11. ABATACEPT [Suspect]
     Active Substance: ABATACEPT
     Indication: Product used for unknown indication
     Dosage: STOP DATE 2015
     Route: 042
     Dates: start: 201505
  12. ABATACEPT [Suspect]
     Active Substance: ABATACEPT
     Indication: Product used for unknown indication
     Route: 042
     Dates: start: 201506
  13. METHOTREXATE [Suspect]
     Active Substance: METHOTREXATE
     Indication: Product used for unknown indication
     Route: 065
     Dates: start: 201410
  14. METHOTREXATE [Suspect]
     Active Substance: METHOTREXATE
     Indication: Product used for unknown indication
     Route: 065
     Dates: start: 201505
  15. METHOTREXATE [Suspect]
     Active Substance: METHOTREXATE
     Indication: Product used for unknown indication
     Route: 065
     Dates: start: 201506
  16. METHOTREXATE [Suspect]
     Active Substance: METHOTREXATE
     Indication: Product used for unknown indication
     Route: 065
  17. METHOTREXATE [Suspect]
     Active Substance: METHOTREXATE
     Indication: Product used for unknown indication
     Dosage: 7.5 MG, QW
     Route: 058
     Dates: start: 20160215

REACTIONS (5)
  - Hypertensive crisis [Unknown]
  - Transitional cell carcinoma [Unknown]
  - Osteoporosis [Unknown]
  - Therapeutic product effect decreased [Unknown]
  - Arthritis [Unknown]

NARRATIVE: CASE EVENT DATE: 20170801
